FAERS Safety Report 15790345 (Version 1)
Quarter: 2019Q1

REPORT INFORMATION
  Report Type: Spontaneous
  Country: US (occurrence: US)
  Receive Date: 20190104
  Receipt Date: 20190104
  Transmission Date: 20190417
  Serious: No
  Sender: FDA-Public Use
  Company Number: US-SA-2019SA001729

PATIENT

DRUGS (1)
  1. ICY HOT MEDICATED, MICRO [Suspect]
     Active Substance: MENTHOL
     Route: 061

REACTIONS (1)
  - Drug ineffective [Unknown]
